FAERS Safety Report 8576526-6 (Version None)
Quarter: 2012Q3

REPORT INFORMATION
  Report Type: 
  Country: None (occurrence: None)
  Receive Date: 20120807
  Receipt Date: 20120725
  Transmission Date: 20120928
  Serious: Yes (Hospitalization)
  Sender: FDA-Public Use
  Company Number: NO-FRI-1000037529

PATIENT
  Sex: Male

DRUGS (9)
  1. METOPROLOL SUCCINATE [Concomitant]
     Indication: ATRIAL FIBRILLATION
     Dosage: 100 MG
     Route: 048
  2. ROFLUMILAST [Suspect]
     Indication: CHRONIC OBSTRUCTIVE PULMONARY DISEASE
     Dosage: 500 MCG
     Route: 048
     Dates: start: 20120323, end: 20120412
  3. SPIRIVA [Concomitant]
     Indication: CHRONIC OBSTRUCTIVE PULMONARY DISEASE
     Dosage: 18 MCG
     Route: 055
  4. WARFARIN SODIUM [Concomitant]
     Indication: ATRIAL FIBRILLATION
     Dosage: 1 TAB MON-WED AND FRI, 2 TABS THUR, SAT, SUN
     Route: 048
  5. SERETIDE [Concomitant]
     Indication: CHRONIC OBSTRUCTIVE PULMONARY DISEASE
     Dosage: 50/500 MCG
     Route: 055
  6. DIGITOXIN TAB [Concomitant]
     Indication: ATRIAL FIBRILLATION
     Dosage: 50 MCG
     Route: 048
  7. LOSARTAN POTASSIUM AND HYDROCHLOROTHIAZIDE [Concomitant]
     Route: 048
  8. TRAVATAN [Concomitant]
     Indication: GLAUCOMA
     Route: 047
  9. AZOPT [Concomitant]
     Indication: GLAUCOMA
     Route: 047

REACTIONS (4)
  - GENERAL PHYSICAL HEALTH DETERIORATION [None]
  - FLUID INTAKE REDUCED [None]
  - DECREASED APPETITE [None]
  - HYPOTENSION [None]
